FAERS Safety Report 4980507-9 (Version None)
Quarter: 2006Q2

REPORT INFORMATION
  Report Type: 
  Country: None (occurrence: None)
  Receive Date: 20060424
  Receipt Date: 20060329
  Transmission Date: 20061013
  Serious: Yes (Hospitalization)
  Sender: FDA-Public Use
  Company Number: BE-BRISTOL-MYERS SQUIBB COMPANY-13330709

PATIENT
  Age: 62 Year
  Sex: Male
  Weight: 86 kg

DRUGS (11)
  1. CISPLATIN [Suspect]
     Indication: SMALL CELL LUNG CANCER STAGE UNSPECIFIED
     Route: 042
     Dates: start: 20060224, end: 20060224
  2. IRINOTECAN HCL [Suspect]
     Indication: SMALL CELL LUNG CANCER STAGE UNSPECIFIED
     Route: 042
     Dates: start: 20060303, end: 20060303
  3. DORMONOCT [Concomitant]
     Route: 048
     Dates: start: 20050101
  4. XANAX [Concomitant]
     Route: 048
     Dates: start: 20060201
  5. LIPITOR [Concomitant]
     Route: 048
     Dates: start: 20050101
  6. CONTRAMAL [Concomitant]
     Route: 048
     Dates: start: 20060201, end: 20060311
  7. VENTOLIN [Concomitant]
     Route: 055
     Dates: start: 20060201
  8. ROMILAR [Concomitant]
     Route: 048
     Dates: start: 20060201
  9. SERETIDE [Concomitant]
     Route: 055
     Dates: start: 20060201
  10. MOVICOL [Concomitant]
     Route: 048
     Dates: start: 20060227, end: 20060305
  11. OROFAR [Concomitant]
     Route: 048
     Dates: start: 20060201

REACTIONS (3)
  - BRONCHITIS [None]
  - DIARRHOEA [None]
  - ILEUS PARALYTIC [None]
